FAERS Safety Report 10201946 (Version 1)
Quarter: 2014Q2

REPORT INFORMATION
  Report Type: Spontaneous
  Country: US (occurrence: US)
  Receive Date: 20140528
  Receipt Date: 20140528
  Transmission Date: 20141212
  Serious: No
  Sender: FDA-Public Use
  Company Number: US-BRISTOL-MYERS SQUIBB COMPANY-19637347

PATIENT
  Age: 6 Decade
  Sex: Male

DRUGS (2)
  1. METFORMIN HCL [Suspect]
  2. CRESTOR [Concomitant]

REACTIONS (1)
  - Diarrhoea [Unknown]
